FAERS Safety Report 19800667 (Version 1)
Quarter: 2021Q3

REPORT INFORMATION
  Report Type: Report from Study
  Country: DE (occurrence: DE)
  Receive Date: 20210907
  Receipt Date: 20210907
  Transmission Date: 20211014
  Serious: Yes (Other)
  Sender: FDA-Public Use
  Company Number: DE-PFIZER INC-202101107281

PATIENT
  Age: 55 Year
  Sex: Female

DRUGS (3)
  1. METHOTREXATE SODIUM. [Suspect]
     Active Substance: METHOTREXATE SODIUM
     Indication: RHEUMATOID ARTHRITIS
     Route: 065
  2. NO SUBJECT DRUG [Suspect]
     Active Substance: UNSPECIFIED INGREDIENT
     Dosage: NO DOSE GIVEN
  3. IDACIO [Suspect]
     Active Substance: ADALIMUMAB
     Indication: RHEUMATOID ARTHRITIS
     Route: 065

REACTIONS (2)
  - Influenza like illness [Recovered/Resolved]
  - Arrhythmia [Not Recovered/Not Resolved]

NARRATIVE: CASE EVENT DATE: 20201101
